FAERS Safety Report 24844702 (Version 2)
Quarter: 2025Q4

REPORT INFORMATION
  Report Type: Other
  Country: US (occurrence: US)
  Receive Date: 20250115
  Receipt Date: 20251013
  Transmission Date: 20260117
  Serious: No
  Sender: TRAVERE THERAPEUTICS
  Company Number: US-TRAVERE-2024TVT01253

PATIENT
  Sex: Male

DRUGS (1)
  1. FILSPARI [Suspect]
     Active Substance: SPARSENTAN
     Indication: Product used for unknown indication
     Route: 048

REACTIONS (4)
  - Face oedema [Unknown]
  - Aggression [Recovered/Resolved]
  - Product dose omission issue [Unknown]
  - Acne [Unknown]
